FAERS Safety Report 9247454 (Version 1)
Quarter: 2013Q2

REPORT INFORMATION
  Report Type: Spontaneous
  Country: US (occurrence: US)
  Receive Date: 20130423
  Receipt Date: 20130423
  Transmission Date: 20140414
  Serious: No
  Sender: FDA-Public Use
  Company Number: US-MYLANLABS-2012S1024503

PATIENT
  Sex: Female

DRUGS (1)
  1. LEVALBUTEROL INHALATION SOLUTION USP [Suspect]
     Route: 055

REACTIONS (2)
  - Lung disorder [Not Recovered/Not Resolved]
  - Wrong technique in drug usage process [Recovered/Resolved]
